FAERS Safety Report 5826960-X (Version None)
Quarter: 2008Q3

REPORT INFORMATION
  Report Type: 
  Country: None (occurrence: None)
  Receive Date: 20080725
  Receipt Date: 20080718
  Transmission Date: 20090109
  Serious: Yes (Death)
  Sender: FDA-Public Use
  Company Number: A-CH2008-21295

PATIENT
  Age: 37 Year
  Sex: Female

DRUGS (2)
  1. TRACLEER [Suspect]
     Indication: PULMONARY HYPERTENSION
     Dosage: 125 MG, BID, ORAL, 62.5 MG, BID, ORAL
     Route: 048
     Dates: start: 20060516, end: 20060616
  2. TRACLEER [Suspect]
     Indication: PULMONARY HYPERTENSION
     Dosage: 125 MG, BID, ORAL, 62.5 MG, BID, ORAL
     Route: 048
     Dates: start: 20060617, end: 20070610

REACTIONS (5)
  - CARDIAC MURMUR [None]
  - CONDITION AGGRAVATED [None]
  - LUPUS NEPHRITIS [None]
  - RIGHT VENTRICULAR FAILURE [None]
  - SYSTEMIC LUPUS ERYTHEMATOSUS [None]
